FAERS Safety Report 18588583 (Version 1)
Quarter: 2020Q4

REPORT INFORMATION
  Report Type: Spontaneous
  Country: US (occurrence: US)
  Receive Date: 20201207
  Receipt Date: 20201207
  Transmission Date: 20210114
  Serious: Yes (Hospitalization)
  Sender: FDA-Public Use
  Company Number: US-AMNEAL PHARMACEUTICALS-2020-AMRX-03766

PATIENT
  Age: 29 Year
  Sex: Female

DRUGS (1)
  1. OXYCODONE HYDROCHLORIDE. [Suspect]
     Active Substance: OXYCODONE HYDROCHLORIDE
     Indication: PRODUCT USED FOR UNKNOWN INDICATION
     Dosage: UNK
     Route: 045

REACTIONS (7)
  - Neurotoxicity [Recovered/Resolved]
  - Brain oedema [Recovered/Resolved]
  - Wrong technique in product usage process [Unknown]
  - Parkinsonism [Not Recovered/Not Resolved]
  - Mutism [Recovered/Resolved]
  - Hydrocephalus [Recovered/Resolved]
  - Incorrect route of product administration [Unknown]
